FAERS Safety Report 4861460-5 (Version None)
Quarter: 2005Q4

REPORT INFORMATION
  Report Type: 
  Country: None (occurrence: None)
  Receive Date: 20051220
  Receipt Date: 20051210
  Transmission Date: 20060501
  Serious: Yes (Hospitalization, Other)
  Sender: FDA-Public Use
  Company Number: BR-JNJFOC-20051204057

PATIENT
  Age: 43 Year
  Sex: Female
  Weight: 73 kg

DRUGS (3)
  1. HALOPERIDOL DECANOATE [Suspect]
     Indication: DRUG USE FOR UNKNOWN INDICATION
     Dosage: (THREE DOSES)
     Route: 050
  2. MIDAZOLAM [Concomitant]
  3. CLONAZEPAM [Concomitant]

REACTIONS (3)
  - APTYALISM [None]
  - SKIN EXFOLIATION [None]
  - TACHYCARDIA [None]
